FAERS Safety Report 25212944 (Version 2)
Quarter: 2025Q2

REPORT INFORMATION
  Report Type: Report from Study
  Country: CA (occurrence: CA)
  Receive Date: 20250418
  Receipt Date: 20250428
  Transmission Date: 20250716
  Serious: Yes (Other)
  Sender: JOHNSON AND JOHNSON
  Company Number: CA-JNJFOC-20250181028

PATIENT
  Age: 13 Year
  Sex: Female

DRUGS (5)
  1. REMICADE [Suspect]
     Active Substance: INFLIXIMAB
     Indication: Colitis ulcerative
     Route: 041
     Dates: start: 20241228
  2. REMICADE [Suspect]
     Active Substance: INFLIXIMAB
     Route: 041
  3. PREDNISONE [Concomitant]
     Active Substance: PREDNISONE
  4. LANSOPRAZOLE [Concomitant]
     Active Substance: LANSOPRAZOLE
  5. FERROUS FUMARATE [Concomitant]
     Active Substance: FERROUS FUMARATE

REACTIONS (3)
  - Colitis ulcerative [Not Recovered/Not Resolved]
  - Abdominal pain [Recovering/Resolving]
  - Diarrhoea [Recovered/Resolved]

NARRATIVE: CASE EVENT DATE: 20250124
